FAERS Safety Report 6589621-8 (Version None)
Quarter: 2010Q1

REPORT INFORMATION
  Report Type: 
  Country: None (occurrence: None)
  Receive Date: 20100218
  Receipt Date: 20100208
  Transmission Date: 20100710
  Serious: Yes (Death)
  Sender: FDA-Public Use
  Company Number: AU-BAXTER-2010BH002817

PATIENT
  Age: 61 Year
  Sex: Female

DRUGS (4)
  1. DEXTROSE CONCENTRATE SOLUTION 50% [Suspect]
     Indication: PARENTERAL NUTRITION
     Route: 065
  2. SYNTHAMIN TAB [Suspect]
     Indication: PARENTERAL NUTRITION
     Route: 065
  3. CLINOLEIC 20% [Suspect]
     Indication: PARENTERAL NUTRITION
     Route: 065
  4. TPN ELECTROLYTES IN PLASTIC CONTAINER [Suspect]

REACTIONS (1)
  - DEATH [None]
